FAERS Safety Report 25622050 (Version 2)
Quarter: 2025Q3

REPORT INFORMATION
  Report Type: Spontaneous
  Country: AU (occurrence: AU)
  Receive Date: 20250730
  Receipt Date: 20250806
  Transmission Date: 20251021
  Serious: Yes (Other)
  Sender: ROCHE
  Company Number: AU-ROCHE-10000347492

PATIENT
  Sex: Male

DRUGS (11)
  1. RITUXIMAB [Suspect]
     Active Substance: RITUXIMAB
     Indication: Follicular lymphoma
     Route: 065
     Dates: start: 201809, end: 201903
  2. RITUXIMAB [Suspect]
     Active Substance: RITUXIMAB
     Route: 065
     Dates: start: 202301, end: 202306
  3. RITUXIMAB [Suspect]
     Active Substance: RITUXIMAB
     Route: 065
     Dates: start: 202403, end: 202407
  4. BENDAMUSTINE [Suspect]
     Active Substance: BENDAMUSTINE
     Indication: Follicular lymphoma
     Route: 065
     Dates: start: 201809, end: 201903
  5. CYCLOPHOSPHAMIDE [Suspect]
     Active Substance: CYCLOPHOSPHAMIDE
     Indication: Follicular lymphoma
     Route: 065
     Dates: start: 202403, end: 202407
  6. CYCLOPHOSPHAMIDE [Suspect]
     Active Substance: CYCLOPHOSPHAMIDE
     Route: 065
     Dates: start: 202301, end: 202306
  7. VINCRISTINE [Suspect]
     Active Substance: VINCRISTINE
     Indication: Follicular lymphoma
     Route: 065
     Dates: start: 202403, end: 202407
  8. VINCRISTINE [Suspect]
     Active Substance: VINCRISTINE
     Route: 065
     Dates: start: 202301, end: 202306
  9. PREDNISOLONE [Suspect]
     Active Substance: PREDNISOLONE
     Indication: Follicular lymphoma
     Route: 065
     Dates: start: 202301, end: 202306
  10. DOXORUBICIN [Suspect]
     Active Substance: DOXORUBICIN
     Indication: Follicular lymphoma
     Route: 065
     Dates: start: 202403, end: 202407
  11. PREDNISONE [Suspect]
     Active Substance: PREDNISONE
     Indication: Follicular lymphoma
     Route: 065
     Dates: start: 202403, end: 202407

REACTIONS (1)
  - Follicular lymphoma [Unknown]
